FAERS Safety Report 5022075-1 (Version None)
Quarter: 2006Q2

REPORT INFORMATION
  Report Type: 
  Country: None (occurrence: None)
  Receive Date: 20060609
  Receipt Date: 20060530
  Transmission Date: 20061013
  Serious: Yes (Hospitalization)
  Sender: FDA-Public Use
  Company Number: 2006UW10386

PATIENT
  Age: 59 Year
  Sex: Male
  Weight: 64.4 kg

DRUGS (3)
  1. TOPROL-XL [Suspect]
     Indication: HEART RATE
     Route: 048
     Dates: start: 20060301
  2. ASPIRIN [Concomitant]
  3. PLAVIX [Concomitant]

REACTIONS (7)
  - COLLAPSE OF LUNG [None]
  - CONCUSSION [None]
  - CONTUSION [None]
  - FALL [None]
  - HAEMOTHORAX [None]
  - PNEUMOTHORAX [None]
  - RIB FRACTURE [None]
